FAERS Safety Report 8281803-2 (Version None)
Quarter: 2012Q2

REPORT INFORMATION
  Report Type: 
  Country: None (occurrence: None)
  Receive Date: 20120413
  Receipt Date: 20120403
  Transmission Date: 20120825
  Serious: Yes (Hospitalization, Other)
  Sender: FDA-Public Use
  Company Number: PHEH2012US007264

PATIENT
  Sex: Female

DRUGS (3)
  1. DIOVAN [Suspect]
     Dosage: 40 MG, BID
  2. ASPIRIN [Concomitant]
     Dosage: 325 MG, BID
  3. NITRGLYCERIN TRANSDERMAL SYSTEM [Concomitant]
     Dosage: 0.4 MG, QD

REACTIONS (5)
  - FALL [None]
  - CONCUSSION [None]
  - VISUAL IMPAIRMENT [None]
  - RETINAL HAEMORRHAGE [None]
  - CEREBRAL HAEMORRHAGE TRAUMATIC [None]
